FAERS Safety Report 7904048-1 (Version None)
Quarter: 2011Q4

REPORT INFORMATION
  Report Type: 
  Country: None (occurrence: None)
  Receive Date: 20111109
  Receipt Date: 20111105
  Transmission Date: 20120403
  Serious: Yes (Other)
  Sender: FDA-Public Use
  Company Number: US-PFIZER INC-2011270950

PATIENT
  Sex: Female
  Weight: 63.492 kg

DRUGS (5)
  1. IBUPROFEN (ADVIL) [Suspect]
     Indication: SURGERY
  2. NORCO [Concomitant]
     Dosage: UNK
  3. AMLODIPINE [Concomitant]
     Indication: HYPERTENSION
     Dosage: UNK
  4. IBUPROFEN (ADVIL) [Suspect]
     Indication: KNEE OPERATION
     Dosage: 200 MG, UNK
     Route: 048
  5. AVALIDE [Concomitant]
     Dosage: UNK

REACTIONS (2)
  - EYE PRURITUS [None]
  - OROPHARYNGEAL BLISTERING [None]
